FAERS Safety Report 5599433-X (Version None)
Quarter: 2008Q1

REPORT INFORMATION
  Report Type: 
  Country: None (occurrence: None)
  Receive Date: 20080122
  Receipt Date: 20080110
  Transmission Date: 20080703
  Serious: Yes (Other)
  Sender: FDA-Public Use
  Company Number: US-PFIZER INC-2008003828

PATIENT
  Sex: Female
  Weight: 50.8 kg

DRUGS (4)
  1. CHANTIX [Suspect]
     Indication: SMOKING CESSATION THERAPY
     Route: 048
  2. NEXIUM [Concomitant]
  3. ALLEGRA [Concomitant]
  4. SARAFEM [Concomitant]

REACTIONS (9)
  - ABDOMINAL DISTENSION [None]
  - HYPOAESTHESIA [None]
  - INSOMNIA [None]
  - INTENTIONAL DRUG MISUSE [None]
  - MUSCLE SPASMS [None]
  - NAUSEA [None]
  - PAIN IN EXTREMITY [None]
  - SWELLING FACE [None]
  - SWOLLEN TONGUE [None]
